FAERS Safety Report 6468626-1 (Version None)
Quarter: 2009Q4

REPORT INFORMATION
  Report Type: 
  Country: None (occurrence: None)
  Receive Date: 20091203
  Receipt Date: 20091125
  Transmission Date: 20100525
  Serious: Yes (Hospitalization)
  Sender: FDA-Public Use
  Company Number: JP-ROCHE-670829

PATIENT
  Sex: Female
  Weight: 40 kg

DRUGS (3)
  1. PEG-INTERFERON ALFA 2A (RO 25-8310) [Suspect]
     Indication: HEPATITIS C
     Route: 058
     Dates: start: 20091007
  2. RIBAVIRIN [Suspect]
     Indication: HEPATITIS C
     Route: 048
     Dates: start: 20091007, end: 20091028
  3. RIBAVIRIN [Suspect]
     Route: 048
     Dates: start: 20091029

REACTIONS (5)
  - COLONIC POLYP [None]
  - HAEMOGLOBIN DECREASED [None]
  - MALAISE [None]
  - PYREXIA [None]
  - RASH [None]
